FAERS Safety Report 7155916-2 (Version None)
Quarter: 2010Q4

REPORT INFORMATION
  Report Type: 
  Country: None (occurrence: None)
  Receive Date: 20101214
  Receipt Date: 20101129
  Transmission Date: 20110411
  Serious: Yes (Other)
  Sender: FDA-Public Use
  Company Number: PHHY2010JP78877

PATIENT
  Sex: Male
  Weight: 63 kg

DRUGS (17)
  1. DIOVAN [Suspect]
     Indication: HYPERTENSION
     Dosage: 160 MG, DAILY
     Route: 048
     Dates: start: 20071205
  2. NIVADIL [Concomitant]
     Indication: HYPERTENSION
     Dosage: 8 MG
     Route: 048
     Dates: start: 20010919, end: 20080109
  3. BLOPRESS [Concomitant]
     Indication: HYPERTENSION
     Dosage: 4 MG, UNK
     Route: 048
     Dates: start: 20050105
  4. BLOPRESS [Concomitant]
     Dosage: 8 MG, UNK
     Route: 048
  5. BLOPRESS [Concomitant]
     Dosage: 12 MG, UNK
     Route: 048
     Dates: end: 20071204
  6. COVERSYL [Concomitant]
     Indication: HYPERTENSION
     Dosage: 8 MG, UNK
     Route: 048
     Dates: start: 20061227, end: 20090928
  7. CARVEDILOL [Concomitant]
     Indication: HYPERTENSION
     Dosage: 15 MG, UNK
     Route: 048
     Dates: start: 20070718, end: 20090928
  8. CARDENALIN [Concomitant]
     Indication: HYPERTENSION
     Dosage: 4 MG, UNK
     Route: 048
     Dates: start: 20070425, end: 20090928
  9. ADALAT CC [Concomitant]
     Indication: HYPERTENSION
     Dosage: 40 MG, UNK
     Route: 048
     Dates: start: 20080109, end: 20090928
  10. DIAZEPAM [Concomitant]
     Dosage: 4 MG, UNK
     Route: 048
     Dates: start: 20010919, end: 20090928
  11. ZYLORIC [Concomitant]
     Dosage: 50 MG, UNK
     Route: 048
     Dates: start: 20060906, end: 20090928
  12. PANALDINE [Concomitant]
     Dosage: 100 MG, UNK
     Route: 048
     Dates: start: 20060906, end: 20090928
  13. ACINON [Concomitant]
     Dosage: 150 MG, UNK
     Route: 048
     Dates: start: 20010919, end: 20090928
  14. URSO 250 [Concomitant]
     Dosage: 600 MG, UNK
     Route: 048
     Dates: start: 20061004, end: 20090928
  15. ASPIRIN [Concomitant]
     Dosage: 100 MG
     Route: 048
     Dates: start: 20030807, end: 20090928
  16. DIART [Concomitant]
     Dosage: 30 MG
     Route: 048
     Dates: start: 20090922, end: 20090430
  17. SPIRIVA [Concomitant]
     Dosage: UNK
     Dates: start: 20090527, end: 20090928

REACTIONS (3)
  - DYSPNOEA [None]
  - INTERSTITIAL LUNG DISEASE [None]
  - PERIARTHRITIS [None]
